FAERS Safety Report 6717735-8 (Version None)
Quarter: 2010Q2

REPORT INFORMATION
  Report Type: 
  Country: None (occurrence: None)
  Receive Date: 20100510
  Receipt Date: 20100427
  Transmission Date: 20101027
  Serious: Yes (Other)
  Sender: FDA-Public Use
  Company Number: US-JNJFOC-20100407654

PATIENT
  Sex: Male
  Weight: 87.09 kg

DRUGS (8)
  1. FENTANYL CITRATE [Suspect]
     Indication: BACK PAIN
     Route: 062
  2. PROVENTIL GENTLEHALER [Concomitant]
     Indication: ASTHMA
     Route: 055
  3. AMBIEN CR [Concomitant]
     Indication: INSOMNIA
     Route: 048
  4. ENALAPRIL MALEATE [Concomitant]
     Indication: HYPERTENSION
     Route: 048
  5. AMITRIPTLINE HYDROCHLORIDE TAB [Concomitant]
     Indication: ANXIETY
     Route: 048
  6. METFORMIN HYDROCHLORIDE [Concomitant]
     Route: 048
  7. ZYPREXA [Concomitant]
     Indication: DEPRESSION
     Route: 048
  8. NITROSTAT [Concomitant]
     Indication: ANGINA PECTORIS
     Route: 060

REACTIONS (18)
  - ADVERSE EVENT [None]
  - CONFUSIONAL STATE [None]
  - DEHYDRATION [None]
  - DELIRIUM [None]
  - DISORIENTATION [None]
  - DYSPEPSIA [None]
  - DYSPNOEA [None]
  - EATING DISORDER [None]
  - FEELING JITTERY [None]
  - HALLUCINATION [None]
  - INSOMNIA [None]
  - NASAL OEDEMA [None]
  - PRODUCT PACKAGING ISSUE [None]
  - PRURITUS [None]
  - RESPIRATORY DISORDER [None]
  - RHINORRHOEA [None]
  - TREATMENT NONCOMPLIANCE [None]
  - WITHDRAWAL SYNDROME [None]
